FAERS Safety Report 24342897 (Version 6)
Quarter: 2025Q2

REPORT INFORMATION
  Report Type: Spontaneous
  Country: SK (occurrence: SK)
  Receive Date: 20240920
  Receipt Date: 20250502
  Transmission Date: 20250716
  Serious: Yes (Hospitalization, Other)
  Sender: NOVARTIS
  Company Number: SK-002147023-NVSC2024SK183966

PATIENT
  Age: 69 Year
  Sex: Male

DRUGS (7)
  1. CYCLOSPORINE [Suspect]
     Active Substance: CYCLOSPORINE
     Indication: Immunosuppressant drug therapy
     Route: 065
     Dates: start: 201004
  2. CYCLOSPORINE [Suspect]
     Active Substance: CYCLOSPORINE
     Indication: Prophylaxis
     Route: 065
  3. CYCLOSPORINE [Suspect]
     Active Substance: CYCLOSPORINE
     Indication: Symptomatic treatment
  4. MYCOPHENOLATE MOFETIL [Suspect]
     Active Substance: MYCOPHENOLATE MOFETIL
     Indication: Prophylaxis
     Route: 065
     Dates: start: 201004
  5. MYCOPHENOLATE MOFETIL [Suspect]
     Active Substance: MYCOPHENOLATE MOFETIL
     Indication: Immunosuppressant drug therapy
     Route: 065
  6. MYCOPHENOLATE MOFETIL [Suspect]
     Active Substance: MYCOPHENOLATE MOFETIL
     Indication: Prophylaxis against transplant rejection
  7. MYCOPHENOLATE MOFETIL [Suspect]
     Active Substance: MYCOPHENOLATE MOFETIL
     Indication: Heart transplant

REACTIONS (11)
  - Diabetic foot [Unknown]
  - COVID-19 [Recovered/Resolved]
  - Diabetes mellitus [Unknown]
  - Osteomyelitis [Unknown]
  - Oedema peripheral [Unknown]
  - Pain [Unknown]
  - Cellulitis [Unknown]
  - Pyrexia [Unknown]
  - Osteonecrosis [Unknown]
  - Gangrene [Unknown]
  - Pulse absent [Unknown]

NARRATIVE: CASE EVENT DATE: 20101001
